FAERS Safety Report 10254712 (Version 1)
Quarter: 2014Q2

REPORT INFORMATION
  Report Type: Spontaneous
  Country: US (occurrence: None)
  Receive Date: 20140620
  Receipt Date: 20140620
  Transmission Date: 20141212
  Serious: Yes (Other)
  Sender: FDA-Public Use
  Company Number: None

PATIENT
  Age: 54 Year
  Sex: Male
  Weight: 76.2 kg

DRUGS (7)
  1. CYANOCOBALAMIN [Suspect]
     Indication: VOMITING
     Dosage: 1000MCG  1ST DOSE SUBCUTANEOUS
     Route: 058
     Dates: start: 20140611
  2. CYANOCOBALAMIN [Suspect]
     Indication: CHRONIC FATIGUE SYNDROME
     Dosage: 1000MCG  1ST DOSE SUBCUTANEOUS
     Route: 058
     Dates: start: 20140611
  3. ZOFRAN [Concomitant]
  4. OSA ROOT [Concomitant]
  5. ZARBEES CHILDREN^S COUGH SYRUP [Concomitant]
  6. TIROSINT [Concomitant]
  7. ^MEGA FOOD^ IRON SUPPLEMENT [Concomitant]

REACTIONS (1)
  - Injection site rash [None]
